FAERS Safety Report 6257136-2 (Version None)
Quarter: 2009Q3

REPORT INFORMATION
  Report Type: 
  Country: None (occurrence: None)
  Receive Date: 20090701
  Receipt Date: 20090701
  Transmission Date: 20100115
  Serious: Yes (Other)
  Sender: FDA-Public Use
  Company Number: None

PATIENT
  Age: 68 Year
  Sex: Female

DRUGS (7)
  1. EZETIMIBE [Suspect]
     Dosage: 10MG DAILY PO
     Route: 048
     Dates: start: 20081224, end: 20090527
  2. GRENGRAF [Concomitant]
  3. ALENDRONATE SODIUM [Concomitant]
  4. PREDNISONE TAB [Concomitant]
  5. FLONASE [Concomitant]
  6. VERAPAMIL [Concomitant]
  7. LISINOPRIL [Concomitant]

REACTIONS (4)
  - FATIGUE [None]
  - FLANK PAIN [None]
  - MYALGIA [None]
  - TACHYCARDIA [None]
